FAERS Safety Report 8920654 (Version 1)
Quarter: 2012Q4

REPORT INFORMATION
  Report Type: 
  Country: US (occurrence: US)
  Receive Date: 20121121
  Receipt Date: 20121121
  Transmission Date: 20130627
  Serious: No
  Sender: FDA-Public Use
  Company Number: US-PFIZER INC-2012288306

PATIENT
  Sex: Male

DRUGS (1)
  1. ZYVOX [Suspect]
     Dosage: 600 mg, UNK
     Dates: start: 201211

REACTIONS (3)
  - Flatulence [Unknown]
  - Constipation [Unknown]
  - Rectal discharge [Unknown]
